FAERS Safety Report 16410315 (Version 1)
Quarter: 2019Q3

REPORT INFORMATION
  Report Type: Spontaneous
  Country: US (occurrence: US)
  Receive Date: 20190607
  Receipt Date: 20190607
  Transmission Date: 20191004
  Serious: Yes (Hospitalization)
  Sender: FDA-Public Use
  Company Number: None

PATIENT
  Age: 72 Year
  Sex: Female

DRUGS (3)
  1. TIMOLOL. [Concomitant]
     Active Substance: TIMOLOL
  2. BRILINTA [Concomitant]
     Active Substance: TICAGRELOR
  3. REPATHA [Suspect]
     Active Substance: EVOLOCUMAB

REACTIONS (1)
  - Surgery [None]

NARRATIVE: CASE EVENT DATE: 20190606
